FAERS Safety Report 7967605-2 (Version None)
Quarter: 2011Q4

REPORT INFORMATION
  Report Type: 
  Country: None (occurrence: None)
  Receive Date: 20111207
  Receipt Date: 20111123
  Transmission Date: 20120403
  Serious: Yes (Other)
  Sender: FDA-Public Use
  Company Number: 2011AP002730

PATIENT
  Age: 66 Year
  Sex: Female

DRUGS (3)
  1. PREDNISONE [Suspect]
     Indication: IMMUNOSUPPRESSION
     Dosage: 20 MG; QD;PO ; 10 MG;QD;PO
     Route: 048
  2. TACROLIMUS [Suspect]
     Dosage: 5 MG;BID;PO ; 2.5 MG;BID;PO
     Route: 048
  3. MYCOPHENOLATE MOFETIL [Suspect]
     Indication: IMMUNOSUPPRESSION
     Dosage: 1000 MG; BID; PO
     Route: 048

REACTIONS (2)
  - EPSTEIN-BARR VIRUS ASSOCIATED LYMPHOPROLIFERATIVE DISORDER [None]
  - EOSINOPHILIA [None]
